FAERS Safety Report 9461813 (Version 1)
Quarter: 2013Q3

REPORT INFORMATION
  Report Type: Report from Study
  Country: JP (occurrence: JP)
  Receive Date: 20130816
  Receipt Date: 20130816
  Transmission Date: 20140515
  Serious: Yes (Death, Other)
  Sender: FDA-Public Use
  Company Number: JP-009507513-1308JPN005417

PATIENT
  Age: 60 Year
  Sex: Male
  Weight: 56 kg

DRUGS (13)
  1. TEMOZOLOMIDE [Suspect]
     Indication: GLIOBLASTOMA MULTIFORME
     Dosage: 150 MG/M2, QD
     Route: 041
     Dates: start: 20111208, end: 20111212
  2. TEMOZOLOMIDE [Suspect]
     Dosage: 150 MG/M2, QD
     Route: 041
     Dates: start: 20120116, end: 20120120
  3. TEMOZOLOMIDE [Suspect]
     Dosage: 150 MG/M2, QD
     Route: 041
     Dates: start: 20120213, end: 20120217
  4. TEMOZOLOMIDE [Suspect]
     Dosage: 150 MG/M2, QD
     Route: 041
     Dates: start: 20120312, end: 20120316
  5. TEMOZOLOMIDE [Suspect]
     Dosage: 150 MG/M2, QD
     Route: 041
     Dates: start: 20120416, end: 20120418
  6. TEMODAL CAPSULES 100MG [Suspect]
     Indication: GLIOBLASTOMA MULTIFORME
     Dosage: DAILY DOSE UNKNOWN
     Route: 048
     Dates: start: 20101228, end: 20111207
  7. FERON [Concomitant]
     Dosage: DAILY DOSE UNKNOWN
     Route: 051
     Dates: start: 20101228, end: 20120420
  8. BAKTAR [Concomitant]
     Indication: ANTIFUNGAL PROPHYLAXIS
     Dosage: DAILY DOSE UNKNOWN (FORMULATION POR)
     Route: 048
     Dates: start: 20101228, end: 20110214
  9. DEPAKENE [Concomitant]
     Dosage: DAILY DOSE UNKNOWN (FORMULATION POR)
     Route: 048
     Dates: start: 20101223, end: 20120513
  10. TOPINA [Concomitant]
     Dosage: DAILY DOSE UNKNOWN (FORMULATION POR)
     Route: 048
     Dates: start: 20101223, end: 20110515
  11. MOBIC [Concomitant]
     Dosage: DAILY DOSE UNKNOWN (FORMULATION POR)
     Route: 048
     Dates: start: 20101223, end: 20120513
  12. TAGAMET [Concomitant]
     Dosage: DAILY DOSE UNKNOWN (FORMULATION POR)
     Route: 048
     Dates: start: 20101223, end: 20120513
  13. ZOSYN [Concomitant]
     Dosage: DAILY DOSE UNKNOWN
     Route: 042
     Dates: start: 20120406, end: 20120416

REACTIONS (3)
  - Pneumonia aspiration [Fatal]
  - Bone marrow failure [Recovered/Resolved]
  - Bone marrow failure [Recovered/Resolved]
